FAERS Safety Report 23810353 (Version 1)
Quarter: 2024Q2

REPORT INFORMATION
  Report Type: Spontaneous
  Country: US (occurrence: US)
  Receive Date: 20240502
  Receipt Date: 20240502
  Transmission Date: 20240716
  Serious: Yes (Other)
  Sender: FDA-Public Use
  Company Number: US-MALLINCKRODT-MNK202402912

PATIENT
  Age: 17 Year
  Sex: Male

DRUGS (4)
  1. NITRIC OXIDE [Suspect]
     Active Substance: NITRIC OXIDE
     Indication: Restrictive cardiomyopathy
     Dosage: 40 PPM
     Route: 055
  2. NITRIC OXIDE [Suspect]
     Active Substance: NITRIC OXIDE
     Indication: Hypertrophic cardiomyopathy
  3. OXYGEN [Concomitant]
     Active Substance: OXYGEN
  4. OXYGEN [Concomitant]
     Active Substance: OXYGEN
     Indication: Restrictive cardiomyopathy

REACTIONS (3)
  - Low cardiac output syndrome [Unknown]
  - Product use issue [Unknown]
  - Drug ineffective for unapproved indication [Unknown]
